FAERS Safety Report 16871693 (Version 1)
Quarter: 2019Q4

REPORT INFORMATION
  Report Type: Spontaneous
  Country: RO (occurrence: RO)
  Receive Date: 20191001
  Receipt Date: 20191001
  Transmission Date: 20200122
  Serious: Yes (Death, Life-Threatening, Hospitalization, Other)
  Sender: FDA-Public Use
  Company Number: RO-AUROBINDO-AUR-APL-2019-061938

PATIENT
  Age: 66 Year
  Sex: Female
  Weight: 78 kg

DRUGS (22)
  1. MEROPENEM 1000 MG POWDER FOR SOLUTION FOR INJECTION OR INFUSION [Suspect]
     Active Substance: MEROPENEM
     Indication: URINARY TRACT INFECTION ENTEROCOCCAL
  2. CYTARABINE. [Suspect]
     Active Substance: CYTARABINE
     Indication: B PRECURSOR TYPE ACUTE LEUKAEMIA
     Dosage: 25 MILLIGRAM, CYCLICAL
     Route: 039
     Dates: start: 20170130
  3. NORMIX [Suspect]
     Active Substance: RIFAXIMIN
     Indication: PRODUCT USED FOR UNKNOWN INDICATION
     Dosage: 3 DOSAGE FORM, TWO TIMES A DAY
     Route: 048
     Dates: start: 20170203, end: 20170226
  4. LINEZOLIDE [Suspect]
     Active Substance: LINEZOLID
     Indication: ENTEROCOCCAL INFECTION
  5. IMIPENEM [Suspect]
     Active Substance: IMIPENEM
     Indication: ENTEROCOCCAL INFECTION
     Dosage: 1 DOSAGE FORM, FOUR TIMES/DAY
     Route: 042
     Dates: start: 20170213, end: 20170226
  6. MEROPENEM 1000 MG POWDER FOR SOLUTION FOR INJECTION OR INFUSION [Suspect]
     Active Substance: MEROPENEM
     Indication: ENTEROCOCCAL INFECTION
     Dosage: 1 DOSAGE FORM, 3 TIMES A DAY
     Route: 042
     Dates: start: 20170212
  7. METHOTREXATE. [Suspect]
     Active Substance: METHOTREXATE
     Indication: B PRECURSOR TYPE ACUTE LEUKAEMIA
     Dosage: 15 MILLIGRAM, CYCLICAL
     Route: 037
     Dates: start: 20170130, end: 2017
  8. LINEZOLIDE [Suspect]
     Active Substance: LINEZOLID
     Indication: URINARY TRACT INFECTION ENTEROCOCCAL
     Dosage: 1 DOSAGE FORM, TWO TIMES A DAY
     Route: 042
     Dates: start: 20170212, end: 20170226
  9. VINCRISTINE [Suspect]
     Active Substance: VINCRISTINE
     Dosage: 2 DOSAGE FORM, CYCLICAL
     Route: 042
     Dates: start: 20170115, end: 201701
  10. CYTARABINE. [Suspect]
     Active Substance: CYTARABINE
     Indication: B PRECURSOR TYPE ACUTE LEUKAEMIA
     Dosage: 4 GRAM, CYCLICAL
     Route: 042
     Dates: start: 20170204, end: 20170205
  11. DEXAMETHASONE. [Suspect]
     Active Substance: DEXAMETHASONE
     Indication: B PRECURSOR TYPE ACUTE LEUKAEMIA
     Dosage: 5 DOSAGE FORM, CYCLICAL
     Route: 042
     Dates: start: 20170113, end: 20170116
  12. METHOTREXATE. [Suspect]
     Active Substance: METHOTREXATE
     Dosage: 1375 MILLIGRAM
     Route: 042
     Dates: start: 20170203, end: 2017
  13. CYCLOPHOSPHAMIDE. [Suspect]
     Active Substance: CYCLOPHOSPHAMIDE
     Indication: B PRECURSOR TYPE ACUTE LEUKAEMIA
     Dosage: 680 MILLIGRAM, CYCLICAL
     Route: 042
     Dates: start: 20170113, end: 20170115
  14. DOXORUBICIN [Suspect]
     Active Substance: DOXORUBICIN
     Indication: B PRECURSOR TYPE ACUTE LEUKAEMIA
     Dosage: 80 MILLIGRAM, CYCLICAL
     Route: 042
     Dates: start: 20170116
  15. VINCRISTINE [Suspect]
     Active Substance: VINCRISTINE
     Indication: B PRECURSOR TYPE ACUTE LEUKAEMIA
     Dosage: 2 DOSAGE FORM, CYCLICAL
     Route: 042
     Dates: start: 201701, end: 20170123
  16. METHOTREXATE. [Suspect]
     Active Substance: METHOTREXATE
     Dosage: 345 MILLIGRAM
     Route: 042
     Dates: start: 20170203, end: 2017
  17. IMIPENEM [Suspect]
     Active Substance: IMIPENEM
     Indication: URINARY TRACT INFECTION
  18. DEXAMETHASONE. [Concomitant]
     Active Substance: DEXAMETHASONE
     Indication: PRODUCT USED FOR UNKNOWN INDICATION
     Dosage: 1 GTT DROPS, EVERY HOUR
     Route: 031
     Dates: start: 20170204, end: 20170207
  19. AMPICILLIN [Suspect]
     Active Substance: AMPICILLIN
     Indication: URINARY TRACT INFECTION ENTEROCOCCAL
     Dosage: 2 DOSAGE FORM, ONCE A DAY
     Route: 042
     Dates: start: 20170203, end: 20170211
  20. METHYLPREDNISOLONE. [Suspect]
     Active Substance: METHYLPREDNISOLONE
     Indication: PRODUCT USED FOR UNKNOWN INDICATION
     Dosage: 50 MILLIGRAM
     Route: 042
     Dates: start: 20170203, end: 20170205
  21. DEXAMETHASONE. [Suspect]
     Active Substance: DEXAMETHASONE
     Dosage: 5 DOSAGE FORM, CYCLICAL
     Route: 042
     Dates: start: 20170123, end: 20170126
  22. SUMETROLIM [Suspect]
     Active Substance: SULFAMETHOXAZOLE\TRIMETHOPRIM
     Indication: PRODUCT USED FOR UNKNOWN INDICATION
     Dosage: 4 DOSAGE FORM, EVERY OTHER DAY
     Route: 048
     Dates: start: 20170205, end: 20170213

REACTIONS (5)
  - Aplasia [Recovering/Resolving]
  - Hepatotoxicity [Not Recovered/Not Resolved]
  - Clostridium difficile colitis [Recovered/Resolved]
  - Acute hepatic failure [Fatal]
  - Hepatic infarction [Fatal]

NARRATIVE: CASE EVENT DATE: 2017
